FAERS Safety Report 5099193-5 (Version None)
Quarter: 2006Q3

REPORT INFORMATION
  Report Type: 
  Country: None (occurrence: None)
  Receive Date: 20060728
  Receipt Date: 20060518
  Transmission Date: 20061208
  Serious: No
  Sender: FDA-Public Use
  Company Number: COT_0536_2006

PATIENT
  Age: 39 Year
  Sex: Male
  Weight: 68.0396 kg

DRUGS (14)
  1. VENTAVIS [Suspect]
     Indication: PULMONARY HYPERTENSION
     Dosage: 5 MCG 7XD IH
     Route: 055
     Dates: start: 20060314
  2. TRACLEER [Concomitant]
  3. ALDACTONE [Concomitant]
  4. CLARITIN [Concomitant]
  5. KEPPRA [Concomitant]
  6. PHENOBARBITAL [Concomitant]
  7. OXYGEN [Concomitant]
  8. ALBUTEROL [Concomitant]
  9. DIGOXIN [Concomitant]
  10. ADVAIR DISKUS 100/50 [Concomitant]
  11. LASIX [Concomitant]
  12. PREDNISONE TAB [Concomitant]
  13. COUMADIN [Concomitant]
  14. FOSAMAX [Concomitant]

REACTIONS (2)
  - HICCUPS [None]
  - INSOMNIA [None]
